FAERS Safety Report 4586117-X (Version None)
Quarter: 2005Q1

REPORT INFORMATION
  Report Type: 
  Country: None (occurrence: None)
  Receive Date: 20050125
  Receipt Date: 20041018
  Transmission Date: 20050727
  Serious: No
  Sender: FDA-Public Use
  Company Number: USA041081444

PATIENT
  Age: 61 Year
  Sex: Female
  Weight: 47 kg

DRUGS (1)
  1. FORTEO [Suspect]
     Dosage: 20 UG/L DAY
     Dates: start: 20040701

REACTIONS (3)
  - CHEST DISCOMFORT [None]
  - DISCOMFORT [None]
  - PARAESTHESIA [None]
